FAERS Safety Report 18283808 (Version 1)
Quarter: 2020Q3

REPORT INFORMATION
  Report Type: Spontaneous
  Country: US (occurrence: US)
  Receive Date: 20200918
  Receipt Date: 20200918
  Transmission Date: 20201103
  Serious: No
  Sender: FDA-Public Use
  Company Number: US-JNJFOC-20200928380

PATIENT
  Age: 60 Year
  Sex: Female
  Weight: 78.09 kg

DRUGS (1)
  1. DARZALEX [Suspect]
     Active Substance: DARATUMUMAB
     Indication: PLASMA CELL MYELOMA
     Route: 042
     Dates: start: 20200909, end: 20200910

REACTIONS (2)
  - Dizziness [Unknown]
  - Vision blurred [Unknown]
